FAERS Safety Report 5061750-X (Version None)
Quarter: 2006Q3

REPORT INFORMATION
  Report Type: 
  Country: None (occurrence: None)
  Receive Date: 20060726
  Receipt Date: 20050804
  Transmission Date: 20061208
  Serious: No
  Sender: FDA-Public Use
  Company Number: US-GLAXOSMITHKLINE-A0568956A

PATIENT
  Sex: Female

DRUGS (5)
  1. DYAZIDE [Suspect]
     Indication: HYPERTENSION
     Dosage: 37.5MG PER DAY
     Route: 048
     Dates: end: 20050201
  2. HYDROCHLOROTHIAZIDE [Suspect]
  3. DIOVAN [Suspect]
  4. CARDIZEM CD [Concomitant]
  5. CLARINEX [Concomitant]

REACTIONS (1)
  - SKIN DISCOLOURATION [None]
